FAERS Safety Report 9203337 (Version 2)
Quarter: 2014Q1

REPORT INFORMATION
  Report Type: Spontaneous
  Country: US (occurrence: US)
  Receive Date: 20130402
  Receipt Date: 20140123
  Transmission Date: 20141002
  Serious: Yes (Hospitalization, Disabling)
  Sender: FDA-Public Use
  Company Number: US-BAYER-2013-038489

PATIENT
  Age: 33 Year
  Sex: Female

DRUGS (25)
  1. YAZ [Suspect]
  2. LYRICA [Concomitant]
     Dosage: 100 MG, TID
     Route: 048
     Dates: start: 20081101
  3. PROMETHAZINE [Concomitant]
     Dosage: UNK
     Route: 048
     Dates: start: 20081101
  4. OXYCODONE [Concomitant]
     Dosage: 15 MG 2-3 TABLETS EVERY 4 HOURS PRN
     Route: 048
     Dates: start: 20081101
  5. EVENING PRIMROSE OIL [Concomitant]
     Dosage: 1000 MG, DAILY
     Route: 048
     Dates: start: 20081101
  6. LORAZEPAM [Concomitant]
     Dosage: 1 MG, BID
     Route: 048
     Dates: start: 20081101
  7. ALPRAZOLAM [Concomitant]
     Dosage: UNK
     Route: 048
     Dates: start: 20081101
  8. METAXALONE [Concomitant]
     Dosage: UNK
     Route: 048
     Dates: start: 20081101
  9. PRAMIPEXOLE [Concomitant]
     Dosage: UNK
     Route: 048
     Dates: start: 20081101
  10. TIZANIDINE [Concomitant]
     Dosage: 4 MG, BID
     Route: 048
     Dates: start: 20081101
  11. DOXYCYCLINE [Concomitant]
     Dosage: 100 MG, UNK
     Route: 048
     Dates: start: 20081101
  12. FUROSEMIDE [Concomitant]
     Dosage: UNK
     Route: 048
     Dates: start: 20081101
  13. SOLIFENACIN [Concomitant]
     Dosage: UNK
     Route: 048
     Dates: start: 20081101
  14. PHENTERMINE [Concomitant]
     Dosage: 37.5 MG, UNK
     Route: 048
     Dates: start: 20081101
  15. SERTRALINE [Concomitant]
     Dosage: 100 MG, UNK
     Route: 048
     Dates: start: 20081101
  16. FOLIC ACID [Concomitant]
     Dosage: 1 MG, BID
     Route: 048
     Dates: start: 20081101
  17. POTASSIUM CHLORIDE [Concomitant]
     Dosage: 10 MEQ, DAILY
     Route: 048
     Dates: start: 20081101
  18. NIRAVAM [Concomitant]
     Dosage: 0.5 MG, PRN
     Route: 048
     Dates: start: 20081101
  19. SKELAXIN [Concomitant]
     Dosage: 800 MG, TID
     Route: 048
     Dates: start: 20081101
  20. LASIX [Concomitant]
     Dosage: 20 MG, DAILY
     Route: 048
     Dates: start: 20081101
  21. MIRAPEX [Concomitant]
     Dosage: 0.5 MG, DAILY
     Route: 048
     Dates: start: 20081101
  22. PHENERGAN [Concomitant]
     Dosage: 25 MG, EVERY 6 HOURS
     Route: 048
     Dates: start: 20081101
  23. VESICARE [Concomitant]
     Dosage: 5 MG, DAILY
     Route: 048
     Dates: start: 20081101
  24. KLOR-CON [Concomitant]
     Dosage: 10 MEQ, UNK
     Route: 048
     Dates: start: 20081106
  25. ZOLOFT [Concomitant]
     Dosage: 100 MG, DAILY

REACTIONS (6)
  - Gallbladder injury [None]
  - Cholecystitis acute [None]
  - Injury [None]
  - Pain [None]
  - General physical health deterioration [None]
  - Emotional distress [None]
